FAERS Safety Report 8534606-5 (Version None)
Quarter: 2012Q3

REPORT INFORMATION
  Report Type: 
  Country: None (occurrence: None)
  Receive Date: 20120724
  Receipt Date: 20120706
  Transmission Date: 20120928
  Serious: Yes (Other)
  Sender: FDA-Public Use
  Company Number: DK-US-EMD SERONO, INC.-7071569

PATIENT
  Sex: Female
  Weight: 62 kg

DRUGS (6)
  1. CLOMIPHENE CITRATE [Suspect]
     Indication: INFERTILITY MALE
     Dates: start: 20071005, end: 20080813
  2. GONAL-F [Concomitant]
     Indication: PRODUCT USED FOR UNKNOWN INDICATION
     Dates: start: 20071005
  3. FOLIC ACID [Concomitant]
     Indication: PRODUCT USED FOR UNKNOWN INDICATION
  4. PUREGON [Concomitant]
     Indication: PRODUCT USED FOR UNKNOWN INDICATION
     Dates: start: 20071029
  5. CLOMIPHENE CITRATE [Suspect]
     Dates: start: 20080801
  6. CHORIONIC GONADOTROPIN [Concomitant]
     Indication: PRODUCT USED FOR UNKNOWN INDICATION
     Dates: start: 20071005

REACTIONS (1)
  - DEPRESSION [None]
